FAERS Safety Report 6260516-2 (Version None)
Quarter: 2009Q3

REPORT INFORMATION
  Report Type: 
  Country: None (occurrence: None)
  Receive Date: 20090708
  Receipt Date: 20081219
  Transmission Date: 20100115
  Serious: No
  Sender: FDA-Public Use
  Company Number: US-BRISTOL-MYERS SQUIBB COMPANY-14285191

PATIENT
  Sex: Female

DRUGS (1)
  1. SINEMET CR [Suspect]
     Indication: PARKINSON'S DISEASE
     Dosage: 1 DOSAGE FORM = 25/100 MG ALSO GIVEN HALF DOSE OF 50/200MG
     Route: 048

REACTIONS (2)
  - NO ADVERSE EVENT [None]
  - WRONG TECHNIQUE IN DRUG USAGE PROCESS [None]
